FAERS Safety Report 6673372-5 (Version None)
Quarter: 2010Q2

REPORT INFORMATION
  Report Type: 
  Country: None (occurrence: None)
  Receive Date: 20100408
  Receipt Date: 20100312
  Transmission Date: 20101027
  Serious: Yes (Hospitalization, Other)
  Sender: FDA-Public Use
  Company Number: PHHY2010JP15812

PATIENT
  Age: 55 Year
  Sex: Female

DRUGS (7)
  1. IMATINIB [Suspect]
     Indication: ACUTE LYMPHOCYTIC LEUKAEMIA
     Dosage: 400 MG DAILY
     Route: 048
     Dates: start: 20030601
  2. IMATINIB [Suspect]
     Dosage: 400 MG DAILY
     Route: 048
  3. IMATINIB [Suspect]
     Dosage: 100MG/DAY
  4. IMATINIB [Suspect]
     Dosage: 400 MG/DAY
  5. FLUDARABINE [Concomitant]
     Dosage: 125 MG/M2, UNK
  6. MELPHALAN HYDROCHLORIDE [Concomitant]
     Dosage: 180 MG/M2, UNK
  7. CYCLOSPORINE [Concomitant]

REACTIONS (4)
  - BONE MARROW TRANSPLANT [None]
  - LEUKAEMIA RECURRENT [None]
  - LYMPHADENOPATHY [None]
  - THERAPY RESPONDER [None]
